FAERS Safety Report 12106276 (Version 3)
Quarter: 2016Q3

REPORT INFORMATION
  Report Type: Report from Study
  Country: JP (occurrence: JP)
  Receive Date: 20160128
  Receipt Date: 20160809
  Transmission Date: 20161109
  Serious: Yes (Other)
  Sender: FDA-Public Use
  Company Number: JP-INCYTE CORPORATION-2015IN004209

PATIENT
  Age: 56 Year
  Sex: Female
  Weight: 44 kg

DRUGS (14)
  1. JAKAFI [Suspect]
     Active Substance: RUXOLITINIB
     Indication: MYELOFIBROSIS
     Dosage: 5 MG, BID
     Route: 048
     Dates: start: 20141128, end: 20150123
  2. JAKAFI [Suspect]
     Active Substance: RUXOLITINIB
     Dosage: 5 MG, QD
     Route: 048
     Dates: start: 20150124, end: 20150227
  3. EXJADE [Concomitant]
     Active Substance: DEFERASIROX
     Indication: PRIMARY MYELOFIBROSIS
     Dosage: UNK
     Route: 048
     Dates: start: 20150703, end: 20150904
  4. DIFLUCAN [Concomitant]
     Active Substance: FLUCONAZOLE
     Indication: PRIMARY MYELOFIBROSIS
     Dosage: 100 MG, UNK
     Route: 048
     Dates: start: 20150917
  5. JAKAFI [Suspect]
     Active Substance: RUXOLITINIB
     Dosage: 5 MG, BID
     Route: 048
     Dates: start: 20150228
  6. DIFLUCAN [Concomitant]
     Active Substance: FLUCONAZOLE
     Indication: MYELOFIBROSIS
  7. DIFLUCAN [Concomitant]
     Active Substance: FLUCONAZOLE
     Indication: PRODUCT USED FOR UNKNOWN INDICATION
  8. EXJADE [Concomitant]
     Active Substance: DEFERASIROX
     Indication: MYELOFIBROSIS
  9. CRAVIT [Concomitant]
     Active Substance: LEVOFLOXACIN
     Indication: PROPHYLAXIS
  10. JAKAFI [Suspect]
     Active Substance: RUXOLITINIB
     Dosage: 10 MG, QD
     Route: 048
     Dates: end: 20150922
  11. CRAVIT [Concomitant]
     Active Substance: LEVOFLOXACIN
     Indication: PRODUCT USED FOR UNKNOWN INDICATION
  12. DIFLUCAN [Concomitant]
     Active Substance: FLUCONAZOLE
     Indication: PROPHYLAXIS
  13. CRAVIT [Concomitant]
     Active Substance: LEVOFLOXACIN
     Indication: PRIMARY MYELOFIBROSIS
     Dosage: 500 MG, UNK
     Route: 048
     Dates: start: 20150917, end: 20150928
  14. CRAVIT [Concomitant]
     Active Substance: LEVOFLOXACIN
     Indication: MYELOFIBROSIS

REACTIONS (1)
  - Anaemia [Recovered/Resolved]

NARRATIVE: CASE EVENT DATE: 20150123
